FAERS Safety Report 5281865-0 (Version None)
Quarter: 2007Q1

REPORT INFORMATION
  Report Type: 
  Country: None (occurrence: None)
  Receive Date: 20070330
  Receipt Date: 20070327
  Transmission Date: 20070707
  Serious: Yes (Other)
  Sender: FDA-Public Use
  Company Number: FR-BRISTOL-MYERS SQUIBB COMPANY-13396239

PATIENT
  Age: 27 Year
  Sex: Female

DRUGS (2)
  1. BUSPAR [Suspect]
     Indication: ANXIETY
     Dosage: DRUG STOPPED AT FIRST + PREGNANCY AND RESTARTED AFTER ABORTION (DATES NOT SPECIFIED)
     Route: 048
  2. ANTIDEPRESSANT NOS [Concomitant]

REACTIONS (2)
  - ABORTION [None]
  - DRUG EXPOSURE DURING PREGNANCY [None]
